FAERS Safety Report 5179635-7 (Version None)
Quarter: 2006Q4

REPORT INFORMATION
  Report Type: 
  Country: None (occurrence: None)
  Receive Date: 20061211
  Receipt Date: 20061128
  Transmission Date: 20070319
  Serious: Yes (Hospitalization)
  Sender: FDA-Public Use
  Company Number: 2006-03086

PATIENT
  Age: 57 Year
  Sex: Female

DRUGS (17)
  1. VELCADE [Suspect]
     Indication: DRUG USE FOR UNKNOWN INDICATION
  2. CEP-25608 (ORAVESCENT FENTANYL CITRATE) [Suspect]
     Indication: BREAKTHROUGH PAIN
     Dosage: 800.00 UG, BUCCAL
     Route: 002
     Dates: start: 20050628
  3. ATENOLOL [Suspect]
     Indication: DRUG USE FOR UNKNOWN INDICATION
     Dates: end: 20051116
  4. NAPROXEN [Concomitant]
  5. FENTANYL [Concomitant]
  6. TIZANIDINE HCL [Concomitant]
  7. OXYCODONE HCL [Concomitant]
  8. RANITIDINE [Concomitant]
  9. RESTORIL [Concomitant]
  10. MULTIVITAMINS (ERGOCALCIFEROL, ASCORBIC ACID, PANTHENOL, NICOTINAMIDE, [Concomitant]
  11. ANZEMET [Concomitant]
  12. PAXIL [Concomitant]
  13. FERROUS SULFATE TAB [Concomitant]
  14. MECLIZINE [Concomitant]
  15. FIBER LAXITIVE [Concomitant]
  16. PEPCID [Concomitant]
  17. FOLACE (DOCUSATE SODIUM) [Concomitant]

REACTIONS (23)
  - ANAEMIA [None]
  - BALANCE DISORDER [None]
  - BLOOD CALCIUM DECREASED [None]
  - BLOOD POTASSIUM DECREASED [None]
  - BLOOD PRESSURE DIASTOLIC INCREASED [None]
  - BLOOD SODIUM INCREASED [None]
  - BLOOD UREA INCREASED [None]
  - COLITIS [None]
  - COLONIC POLYP [None]
  - DEHYDRATION [None]
  - DILATATION ATRIAL [None]
  - DIZZINESS POSTURAL [None]
  - GASTRIC ULCER [None]
  - GASTRITIS [None]
  - GASTROINTESTINAL HAEMORRHAGE [None]
  - HAEMORRHOIDS [None]
  - MYOCARDIAL ISCHAEMIA [None]
  - OESOPHAGEAL ULCER [None]
  - ORAL INTAKE REDUCED [None]
  - ORTHOSTATIC HYPOTENSION [None]
  - PEPTIC ULCER [None]
  - PLATELET COUNT DECREASED [None]
  - PRESYNCOPE [None]
